FAERS Safety Report 6491139-8 (Version None)
Quarter: 2009Q4

REPORT INFORMATION
  Report Type: 
  Country: None (occurrence: None)
  Receive Date: 20091211
  Receipt Date: 20091207
  Transmission Date: 20100525
  Serious: Yes (Hospitalization)
  Sender: FDA-Public Use
  Company Number: US-JNJFOC-20091200933

PATIENT
  Sex: Male
  Weight: 12.5 kg

DRUGS (5)
  1. BLINDED; INFLIXIMAB, RECOMBINANT [Suspect]
     Indication: KAWASAKI'S DISEASE
     Route: 042
     Dates: start: 20090824
  2. PLACEBO [Suspect]
     Indication: KAWASAKI'S DISEASE
     Route: 042
     Dates: start: 20090824
  3. IMMUNE GLOBULIN INTRAVENOUS (HUMAN) [Concomitant]
     Indication: KAWASAKI'S DISEASE
     Route: 042
  4. ACETAMINOPHEN [Concomitant]
     Indication: PREMEDICATION
  5. DIPHENHYDRAMINE HCL [Concomitant]
     Indication: PREMEDICATION

REACTIONS (1)
  - ABDOMINAL PAIN [None]
